FAERS Safety Report 18985473 (Version 3)
Quarter: 2021Q2

REPORT INFORMATION
  Report Type: Other
  Country: PT (occurrence: PT)
  Receive Date: 20210309
  Receipt Date: 20210522
  Transmission Date: 20210717
  Serious: Yes (Disabling)
  Sender: FDA-Public Use
  Company Number: PT-ROCHE-2777109

PATIENT
  Sex: Male

DRUGS (6)
  1. VENTILAN [Concomitant]
     Active Substance: ALBUTEROL SULFATE
  2. PANTOPRAZOL [Concomitant]
     Active Substance: PANTOPRAZOLE SODIUM
     Dosage: 1 IN FASTING
  3. LISINOPRIL. [Concomitant]
     Active Substance: LISINOPRIL
     Dosage: 1 AT BREAKFAST
  4. ROSILAN [Concomitant]
     Active Substance: DEFLAZACORT
     Dosage: 6 MG (1/2 PILL)
  5. ESBRIET [Suspect]
     Active Substance: PIRFENIDONE
     Indication: IDIOPATHIC PULMONARY FIBROSIS
     Route: 048
     Dates: start: 20200210
  6. ZILPEN (PORTUGAL) [Concomitant]
     Indication: PAIN

REACTIONS (7)
  - Dyspnoea [Not Recovered/Not Resolved]
  - Fatigue [Not Recovered/Not Resolved]
  - Condition aggravated [Unknown]
  - Pain [Unknown]
  - Skin disorder [Unknown]
  - Productive cough [Not Recovered/Not Resolved]
  - Oxygen saturation decreased [Unknown]
